FAERS Safety Report 4946434-8 (Version None)
Quarter: 2006Q1

REPORT INFORMATION
  Report Type: 
  Country: None (occurrence: None)
  Receive Date: 20060314
  Receipt Date: 20060223
  Transmission Date: 20060701
  Serious: Yes (Other)
  Sender: FDA-Public Use
  Company Number: US200602004979

PATIENT
  Age: 70 Year
  Weight: 105.7 kg

DRUGS (1)
  1. HUMULIN 70/30 [Suspect]
     Dosage: 14 U/ML, EACH MORNING, UNK; 7U, OTHER, UNK; 22U, EACH MORNING, UNK
     Dates: start: 19930101

REACTIONS (4)
  - CATARACT [None]
  - EYE HAEMORRHAGE [None]
  - PHARMACEUTICAL PRODUCT COMPLAINT [None]
  - VISUAL ACUITY REDUCED [None]
